FAERS Safety Report 17996286 (Version 1)
Quarter: 2020Q3

REPORT INFORMATION
  Report Type: Spontaneous
  Country: CN (occurrence: CN)
  Receive Date: 20200708
  Receipt Date: 20200708
  Transmission Date: 20201103
  Serious: Yes (Hospitalization)
  Sender: FDA-Public Use
  Company Number: CN-B.I. PHARMACEUTICALS,INC./RIDGEFIELD-2020-BI-033286

PATIENT
  Age: 62 Year
  Sex: Male
  Weight: 73 kg

DRUGS (3)
  1. ATROVENT [Suspect]
     Active Substance: IPRATROPIUM BROMIDE
     Indication: DYSPNOEA
     Dosage: FORM OF ADMIN: INHALATION SOLUTION
     Route: 055
     Dates: start: 20200608, end: 20200618
  2. BUDESONIDE. [Concomitant]
     Active Substance: BUDESONIDE
     Indication: INFLAMMATION
     Dosage: FORM OF ADMIN: SUSPENSION SOLUTION FOR INHALATION
     Route: 055
     Dates: start: 20200608, end: 20200621
  3. SALBUTAMOL [Concomitant]
     Active Substance: ALBUTEROL
     Indication: DYSPNOEA
     Dosage: FORM OF ADMIN: ATOMIZING SOLUTION
     Route: 055
     Dates: start: 20200608, end: 20200621

REACTIONS (2)
  - Dry mouth [Recovered/Resolved]
  - Pharyngeal erythema [Recovered/Resolved]

NARRATIVE: CASE EVENT DATE: 20200612
